FAERS Safety Report 4428389-8 (Version None)
Quarter: 2004Q3

REPORT INFORMATION
  Report Type: 
  Country: None (occurrence: None)
  Receive Date: 20040813
  Receipt Date: 20040802
  Transmission Date: 20050211
  Serious: Yes (Other)
  Sender: FDA-Public Use
  Company Number: 2004222530JP

PATIENT
  Age: 61 Year
  Sex: Male

DRUGS (3)
  1. XALATAN [Suspect]
     Indication: OPEN ANGLE GLAUCOMA
     Dosage: QD, OPHTHALMIC
     Route: 047
     Dates: start: 20040326, end: 20040630
  2. FLUMETHOLON(FLUOROMETHOLONE) [Suspect]
     Indication: KERATITIS
     Dosage: TID, OPHTHALMIC
     Route: 047
     Dates: start: 20040426, end: 20040703
  3. TIMOPTIC [Concomitant]

REACTIONS (3)
  - IRIS CYST [None]
  - KERATITIS [None]
  - KERATITIS HERPETIC [None]
